FAERS Safety Report 7522207-7 (Version None)
Quarter: 2011Q2

REPORT INFORMATION
  Report Type: 
  Country: None (occurrence: None)
  Receive Date: 20110603
  Receipt Date: 20110426
  Transmission Date: 20111010
  Serious: No
  Sender: FDA-Public Use
  Company Number: US-BAYER-2011-037629

PATIENT
  Age: 17 Year
  Sex: Female

DRUGS (1)
  1. ALEVE (CAPLET) [Suspect]
     Dosage: DAILY DOSE 4 DF
     Route: 048
     Dates: start: 20110426

REACTIONS (1)
  - NO ADVERSE EVENT [None]
